FAERS Safety Report 17024578 (Version 1)
Quarter: 2019Q4

REPORT INFORMATION
  Report Type: Report from Study
  Country: US (occurrence: US)
  Receive Date: 20191113
  Receipt Date: 20191113
  Transmission Date: 20200122
  Serious: Yes (Death)
  Sender: FDA-Public Use
  Company Number: US-ROCHE-2460031

PATIENT
  Age: 36 Year
  Sex: Female

DRUGS (2)
  1. ALTEPLASE. [Suspect]
     Active Substance: ALTEPLASE
     Indication: METASTASES TO CENTRAL NERVOUS SYSTEM
     Route: 042
     Dates: start: 20190731
  2. KADCYLA [Suspect]
     Active Substance: ADO-TRASTUZUMAB EMTANSINE
     Indication: BREAST CANCER FEMALE
     Dosage: NO
     Route: 065
     Dates: start: 20190425

REACTIONS (3)
  - Product use in unapproved indication [Unknown]
  - Off label use [Unknown]
  - Death [Fatal]

NARRATIVE: CASE EVENT DATE: 20190731
